FAERS Safety Report 4790474-9 (Version None)
Quarter: 2005Q4

REPORT INFORMATION
  Report Type: 
  Country: None (occurrence: None)
  Receive Date: 20051005
  Receipt Date: 20050916
  Transmission Date: 20060501
  Serious: Yes (Other)
  Sender: FDA-Public Use
  Company Number: USA0509108412

PATIENT
  Age: 42 Year
  Sex: Female

DRUGS (3)
  1. CYMBALTA [Suspect]
     Indication: MAJOR DEPRESSION
     Dates: start: 20050601, end: 20050801
  2. WEELLBUTRIN (BUPROPION HYDROCHLORIDE) [Concomitant]
  3. XANAX [Concomitant]

REACTIONS (1)
  - HEPATITIS [None]
